FAERS Safety Report 4379516-2 (Version None)
Quarter: 2004Q2

REPORT INFORMATION
  Report Type: 
  Country: None (occurrence: None)
  Receive Date: 20040610
  Receipt Date: 20040602
  Transmission Date: 20050107
  Serious: Yes (Hospitalization)
  Sender: FDA-Public Use
  Company Number: TPA2004A00688

PATIENT
  Age: 46 Year
  Sex: Female
  Weight: 115.2136 kg

DRUGS (11)
  1. ACTOS [Suspect]
     Indication: DIABETES MELLITUS NON-INSULIN-DEPENDENT
     Dosage: 30 MG, 1 IN 1 D, PER ORAL
     Route: 048
     Dates: start: 20040331
  2. METFORMIN HCL [Concomitant]
  3. GLYBURIDE [Concomitant]
  4. LISINOPRIL [Concomitant]
  5. PLAVIX [Concomitant]
  6. ASPIRIN [Concomitant]
  7. MULTIPLE VITAMIN (MULTIPLE VITAMIN) [Concomitant]
  8. B COMPLEX ELX [Concomitant]
  9. VITAMIN E [Concomitant]
  10. VITAMIN C (ASCORBIC ACID) [Concomitant]
  11. OMEGA-3 (FISH OIL) [Concomitant]

REACTIONS (3)
  - ARTERIAL OCCLUSIVE DISEASE [None]
  - SENSITIVITY OF TEETH [None]
  - TOOTHACHE [None]
